FAERS Safety Report 25543899 (Version 1)
Quarter: 2025Q3

REPORT INFORMATION
  Report Type: Spontaneous
  Country: US (occurrence: None)
  Receive Date: 20250710
  Receipt Date: 20250710
  Transmission Date: 20251021
  Serious: Yes (Disabling)
  Sender: FDA-CTU
  Company Number: None

PATIENT
  Sex: Female
  Weight: 69.75 kg

DRUGS (22)
  1. DIVALPROEX SODIUM DR [Suspect]
     Active Substance: DIVALPROEX SODIUM
     Indication: Migraine
     Dosage: FREQUENCY : TWICE A DAY;?
     Route: 048
  2. LISINOPRIL [Concomitant]
     Active Substance: LISINOPRIL
  3. ATORVASTATIN [Concomitant]
     Active Substance: ATORVASTATIN
  4. PANTOPRAZOLE [Concomitant]
     Active Substance: PANTOPRAZOLE
  5. LEVOTHYROXINE SODIUM [Concomitant]
     Active Substance: LEVOTHYROXINE SODIUM
  6. BUPROPION HYDROCHLORIDE XL [Concomitant]
     Active Substance: BUPROPION HYDROCHLORIDE
  7. MONTELUKAST SODIUM [Concomitant]
     Active Substance: MONTELUKAST SODIUM
  8. FINASTERIDE [Concomitant]
     Active Substance: FINASTERIDE
  9. ESTRADIOL [Concomitant]
     Active Substance: ESTRADIOL
  10. METAXALONE [Concomitant]
     Active Substance: METAXALONE
  11. SUCRALFATE [Concomitant]
     Active Substance: SUCRALFATE
  12. CETIRIZINE [Concomitant]
     Active Substance: CETIRIZINE HYDROCHLORIDE
  13. POTASSIUM [Concomitant]
     Active Substance: POTASSIUM
  14. Calcium magnesium zinc + D [Concomitant]
  15. Vitafusion Women^s Multi gummies [Concomitant]
  16. fiber well gummies [Concomitant]
  17. Cranberry gummies [Concomitant]
  18. force factor amazing ashwa soft chews [Concomitant]
  19. Advanced probiotic [Concomitant]
  20. DEMANNOSE [Concomitant]
     Active Substance: DEMANNOSE
  21. MAGNESIUM CITRATE [Concomitant]
     Active Substance: MAGNESIUM CITRATE
  22. MAGNESIUM GLYCINATE [Concomitant]
     Active Substance: MAGNESIUM GLYCINATE

REACTIONS (8)
  - Alopecia [None]
  - Nystagmus [None]
  - Weight increased [None]
  - Depression [None]
  - Suicidal ideation [None]
  - Tremor [None]
  - Memory impairment [None]
  - Hair growth abnormal [None]
